FAERS Safety Report 9999653 (Version 2)
Quarter: 2014Q2

REPORT INFORMATION
  Report Type: Report from Study
  Country: US (occurrence: US)
  Receive Date: 20140312
  Receipt Date: 20140402
  Transmission Date: 20141212
  Serious: Yes (Hospitalization, Other)
  Sender: FDA-Public Use
  Company Number: US-PURDUE-USA-2014-0111820

PATIENT
  Age: 56 Year
  Sex: Female

DRUGS (3)
  1. OXY CR TAB [Suspect]
     Indication: PRODUCT USED FOR UNKNOWN INDICATION
     Dosage: UNK
     Route: 048
     Dates: start: 20110416
  2. OXY CR TAB [Suspect]
     Indication: ARTHRITIS
     Dosage: 80 MG, BID
     Route: 048
     Dates: start: 20140203
  3. OXY CR TAB [Suspect]
     Dosage: 80 MG, BID
     Route: 048
     Dates: start: 20140303

REACTIONS (2)
  - Heart rate decreased [Unknown]
  - Chest pain [Unknown]
